FAERS Safety Report 4986956-7 (Version None)
Quarter: 2006Q2

REPORT INFORMATION
  Report Type: 
  Country: None (occurrence: None)
  Receive Date: 20060428
  Receipt Date: 20060428
  Transmission Date: 20061013
  Serious: Yes (Other)
  Sender: FDA-Public Use
  Company Number: None

PATIENT
  Sex: Male
  Weight: 100 kg

DRUGS (5)
  1. CRESTOR [Suspect]
     Indication: BLOOD TRIGLYCERIDES INCREASED
     Dosage: 10 MG DAY PO
     Route: 048
     Dates: start: 20060101, end: 20060424
  2. COZAAR [Concomitant]
  3. ASPIRIN [Concomitant]
  4. CARVEDILOL-DILATREND- [Concomitant]
  5. ALPRAZOLAM-ALPRALINE- [Concomitant]

REACTIONS (4)
  - AMNESIA [None]
  - MEMORY IMPAIRMENT [None]
  - MYALGIA [None]
  - UBIQUINONE DECREASED [None]
